FAERS Safety Report 15276114 (Version 1)
Quarter: 2018Q3

REPORT INFORMATION
  Report Type: Spontaneous
  Country: DE (occurrence: DE)
  Receive Date: 20180814
  Receipt Date: 20180814
  Transmission Date: 20181010
  Serious: Yes (Other)
  Sender: FDA-Public Use
  Company Number: PHHY2016DE187141

PATIENT
  Age: 50 Year
  Sex: Female
  Weight: 68 kg

DRUGS (15)
  1. PACLITAXEL. [Suspect]
     Active Substance: PACLITAXEL
     Indication: BREAST CANCER
     Dosage: 160 MG, QW (FREQUENCY? WEEKS)
     Route: 042
  2. PACLITAXEL. [Suspect]
     Active Substance: PACLITAXEL
     Dosage: 160 MG, QW (FREQUENCY? WEEKS)
     Route: 042
  3. PACLITAXEL. [Suspect]
     Active Substance: PACLITAXEL
     Dosage: 160 MG, QW (FREQUENCY? WEEKS)
     Route: 042
  4. CIPRO [Concomitant]
     Active Substance: CIPROFLOXACIN HYDROCHLORIDE
     Indication: PYREXIA
     Dosage: 1000 MG, QD
     Route: 048
     Dates: start: 20150614, end: 20150618
  5. PACLITAXEL. [Suspect]
     Active Substance: PACLITAXEL
     Dosage: 160 MG, QW (FREQUENCY? WEEKS)
     Route: 042
  6. PACLITAXEL. [Suspect]
     Active Substance: PACLITAXEL
     Dosage: 160 MG, QW (FREQUENCY? WEEKS)
     Route: 042
  7. ACC [Concomitant]
     Active Substance: ACETYLCYSTEINE
     Indication: COUGH
     Dosage: 600 MG
     Route: 048
  8. IBUPROFEN. [Concomitant]
     Active Substance: IBUPROFEN
     Indication: BACK PAIN
     Dosage: 1800 MG, QD
     Route: 048
     Dates: start: 20150319
  9. PACLITAXEL. [Suspect]
     Active Substance: PACLITAXEL
     Dosage: 160 MG, QW (FREQUENCY? WEEKS)
     Route: 042
  10. CIPRO [Concomitant]
     Active Substance: CIPROFLOXACIN HYDROCHLORIDE
     Indication: COUGH
     Dosage: 1000 MG, QD
     Route: 048
     Dates: start: 20150528, end: 20150601
  11. PACLITAXEL. [Suspect]
     Active Substance: PACLITAXEL
     Dosage: 160 MG, QW (FREQUENCY? WEEKS)
     Route: 042
  12. BEVACIZUMAB. [Suspect]
     Active Substance: BEVACIZUMAB
     Indication: BREAST CANCER
     Dosage: 680 MG, Q2W (2 WEEK)
     Route: 042
     Dates: start: 20150409
  13. PACLITAXEL. [Suspect]
     Active Substance: PACLITAXEL
     Dosage: 160 MG, QW (FREQUENCY? WEEKS)
     Route: 042
  14. PACLITAXEL. [Suspect]
     Active Substance: PACLITAXEL
     Dosage: 160 MG, QW (FREQUENCY? WEEKS)
     Route: 042
  15. CIPRO [Concomitant]
     Active Substance: CIPROFLOXACIN HYDROCHLORIDE
     Indication: COUGH
     Dosage: 1000 MG, QD
     Route: 048
     Dates: start: 20150402, end: 20150406

REACTIONS (7)
  - Dyspnoea [Unknown]
  - Abdominal pain upper [Recovered/Resolved]
  - Chest discomfort [Recovered/Resolved]
  - Alopecia [Unknown]
  - Fatigue [Unknown]
  - Thrombosis [Recovered/Resolved]
  - Hypothyroidism [Unknown]

NARRATIVE: CASE EVENT DATE: 20150416
